FAERS Safety Report 4772441-4 (Version None)
Quarter: 2005Q3

REPORT INFORMATION
  Report Type: 
  Country: None (occurrence: None)
  Receive Date: 20050914
  Receipt Date: 20050902
  Transmission Date: 20060218
  Serious: Yes (Other)
  Sender: FDA-Public Use
  Company Number: TCI2005A02380

PATIENT
  Age: 92 Year
  Sex: Male

DRUGS (1)
  1. LEUPROLIDE ACETATE [Suspect]
     Indication: PROSTATE CANCER
     Dosage: 3.75 MG (3.75 MG, 1 IN 28 D)  SUBCUTANEOUS
     Route: 058
     Dates: start: 20050512, end: 20050512

REACTIONS (26)
  - ANOREXIA [None]
  - AORTIC ANEURYSM [None]
  - BENIGN PROSTATIC HYPERPLASIA [None]
  - CALCINOSIS [None]
  - CONDITION AGGRAVATED [None]
  - CYANOSIS [None]
  - DIFFICULTY IN WALKING [None]
  - DISSEMINATED INTRAVASCULAR COAGULATION [None]
  - FALL [None]
  - HEPATIC FUNCTION ABNORMAL [None]
  - HEPATIC STEATOSIS [None]
  - HYPOXIA [None]
  - LIVER DISORDER [None]
  - LIVER PALPABLE SUBCOSTAL [None]
  - LYMPHADENOPATHY [None]
  - MASS [None]
  - MUSCLE DISORDER [None]
  - NAUSEA [None]
  - PLATELET COUNT DECREASED [None]
  - PNEUMONIA ASPIRATION [None]
  - PSEUDOMONAS INFECTION [None]
  - RENAL CYST [None]
  - RHABDOMYOLYSIS [None]
  - SHOCK [None]
  - SOFT TISSUE DISORDER [None]
  - VOMITING [None]
